FAERS Safety Report 6017026-7 (Version None)
Quarter: 2008Q4

REPORT INFORMATION
  Report Type: 
  Country: None (occurrence: None)
  Receive Date: 20081223
  Receipt Date: 20081217
  Transmission Date: 20090506
  Serious: Yes (Hospitalization)
  Sender: FDA-Public Use
  Company Number: US-SP-2008-04042

PATIENT
  Age: 26 Year
  Sex: Male

DRUGS (2)
  1. TUBERSOL [Suspect]
     Indication: TUBERCULIN TEST
     Route: 030
  2. HEPATITIS B [Suspect]
     Indication: IMMUNISATION
     Route: 065

REACTIONS (4)
  - ASTHMA [None]
  - DYSPNOEA [None]
  - INCORRECT ROUTE OF DRUG ADMINISTRATION [None]
  - WRONG TECHNIQUE IN DRUG USAGE PROCESS [None]
